FAERS Safety Report 14664468 (Version 14)
Quarter: 2023Q4

REPORT INFORMATION
  Report Type: Spontaneous
  Country: US (occurrence: US)
  Receive Date: 20180321
  Receipt Date: 20231023
  Transmission Date: 20240110
  Serious: Yes (Other)
  Sender: FDA-Public Use
  Company Number: US-PFIZER INC-2018117041

PATIENT
  Age: 60 Year
  Sex: Female

DRUGS (4)
  1. IBRANCE [Suspect]
     Active Substance: PALBOCICLIB
     Dosage: 125 MG, CYCLIC (ONCE IN A DAY 21 DAYS ON AND 7 DAYS OFF)
     Dates: start: 20180308, end: 2018
  2. IBRANCE [Suspect]
     Active Substance: PALBOCICLIB
     Dosage: 100 MG
     Dates: start: 2018, end: 2018
  3. IBRANCE [Suspect]
     Active Substance: PALBOCICLIB
     Dosage: 75 MG, CYCLIC (1 TIME PER DAY TAKE WEEK ON FOLLOWED BY WEEK OFF)
     Route: 048
  4. IBRANCE [Suspect]
     Active Substance: PALBOCICLIB
     Dosage: 75 MG, CYCLIC (1 TIME PER DAY TAKE DAILY FOR 14 DAYS FOLLOWED BY 7 DAYS OFF)
     Route: 048

REACTIONS (12)
  - White blood cell count decreased [Recovering/Resolving]
  - Off label use [Unknown]
  - Product use issue [Unknown]
  - Immune system disorder [Unknown]
  - Eye irritation [Recovering/Resolving]
  - Gastrooesophageal reflux disease [Unknown]
  - Pruritus [Unknown]
  - Dry mouth [Unknown]
  - Chills [Recovering/Resolving]
  - Feeling cold [Recovering/Resolving]
  - Pyrexia [Unknown]
  - Rash [Recovering/Resolving]

NARRATIVE: CASE EVENT DATE: 20180101
